FAERS Safety Report 12812942 (Version 2)
Quarter: 2016Q4

REPORT INFORMATION
  Report Type: Spontaneous
  Country: US (occurrence: US)
  Receive Date: 20161005
  Receipt Date: 20161021
  Transmission Date: 20170207
  Serious: Yes (Other)
  Sender: FDA-Public Use
  Company Number: US-AMGEN-USASP2016059898

PATIENT
  Age: 78 Year
  Sex: Female
  Weight: 87.98 kg

DRUGS (6)
  1. ELIQUIS [Concomitant]
     Active Substance: APIXABAN
     Indication: COAGULOPATHY
  2. VITAMIN D [Concomitant]
     Active Substance: CHOLECALCIFEROL
  3. PROLIA [Suspect]
     Active Substance: DENOSUMAB
     Indication: OSTEOPOROSIS POSTMENOPAUSAL
     Dosage: UNK, Q6MO
     Route: 058
     Dates: start: 201603, end: 20160512
  4. ZOLOFT [Concomitant]
     Active Substance: SERTRALINE HYDROCHLORIDE
  5. LIPITOR [Concomitant]
     Active Substance: ATORVASTATIN CALCIUM
  6. OCUVITE [Concomitant]
     Active Substance: VITAMINS

REACTIONS (14)
  - Poor peripheral circulation [Unknown]
  - Back pain [Unknown]
  - Bone pain [Unknown]
  - Mobility decreased [Unknown]
  - Cerebrovascular accident [Unknown]
  - Arthralgia [Unknown]
  - Atrial flutter [Unknown]
  - Impaired work ability [Unknown]
  - Pain [Unknown]
  - Paraesthesia [Unknown]
  - Pain in extremity [Recovered/Resolved]
  - Feeling abnormal [Unknown]
  - Sensory disturbance [Recovered/Resolved]
  - Gait disturbance [Unknown]

NARRATIVE: CASE EVENT DATE: 2016
